FAERS Safety Report 23800847 (Version 1)
Quarter: 2024Q2

REPORT INFORMATION
  Report Type: Spontaneous
  Country: FI (occurrence: FI)
  Receive Date: 20240430
  Receipt Date: 20240430
  Transmission Date: 20240716
  Serious: Yes (Hospitalization)
  Sender: FDA-Public Use
  Company Number: None

PATIENT
  Age: 67 Year
  Sex: Female

DRUGS (5)
  1. CLOZAPINE [Suspect]
     Active Substance: CLOZAPINE
     Indication: Schizophrenia
     Dosage: DOSE ELEVATION WAS QUITE SLOW IN SUCH WAS THAT IN 5-6 WEEKS THE DOSE 125 MG WAS ACHIEVED
     Route: 048
     Dates: start: 20240202, end: 20240405
  2. COSOPT [Concomitant]
     Active Substance: DORZOLAMIDE HYDROCHLORIDE\TIMOLOL MALEATE
     Indication: Glaucoma
     Dosage: 1 DROP PER DAY/ GTT PER DAY
     Route: 047
  3. OLANZAPINE [Concomitant]
     Active Substance: OLANZAPINE
     Indication: Schizophrenia
     Dosage: 20 MILLIGRAM, QD (20 MGX1)
     Route: 065
  4. LATANOPROST [Concomitant]
     Active Substance: LATANOPROST
     Indication: Glaucoma
     Dosage: 1 DROP/ 1 GTT
     Route: 047
  5. OXAZEPAM [Concomitant]
     Active Substance: OXAZEPAM
     Indication: Anxiety
     Dosage: 15 MILLIGRAM, 15 MG TIMES THREE WHEN NEEDED/15 MG
     Route: 048

REACTIONS (7)
  - General physical health deterioration [Recovered/Resolved]
  - Faecal calprotectin increased [Recovered/Resolved]
  - Diarrhoea [Recovered/Resolved]
  - Alanine aminotransferase increased [Recovered/Resolved]
  - Muscular weakness [Recovered/Resolved]
  - Gamma-glutamyltransferase increased [Recovered/Resolved]
  - Eosinophilia [Recovered/Resolved]

NARRATIVE: CASE EVENT DATE: 20240301
